FAERS Safety Report 12911200 (Version 1)
Quarter: 2016Q4

REPORT INFORMATION
  Report Type: Spontaneous
  Country: CN (occurrence: CN)
  Receive Date: 20161104
  Receipt Date: 20161104
  Transmission Date: 20170207
  Serious: Yes (Hospitalization)
  Sender: FDA-Public Use
  Company Number: CN-BAYER-2016-207804

PATIENT

DRUGS (1)
  1. NEXAVAR [Suspect]
     Active Substance: SORAFENIB
     Indication: HEPATOCELLULAR CARCINOMA
     Dosage: 2 PILLS PER DAY

REACTIONS (6)
  - Ammonia increased [Recovered/Resolved]
  - Activities of daily living impaired [None]
  - Coordination abnormal [None]
  - Confusional state [None]
  - Coma hepatic [None]
  - Coma [None]

NARRATIVE: CASE EVENT DATE: 2016
